FAERS Safety Report 5787319-7 (Version None)
Quarter: 2008Q2

REPORT INFORMATION
  Report Type: 
  Country: None (occurrence: None)
  Receive Date: 20080625
  Receipt Date: 20070910
  Transmission Date: 20081010
  Serious: No
  Sender: FDA-Public Use
  Company Number: US-ASTRAZENECA-2007UW21297

PATIENT
  Age: 59 Year
  Sex: Female

DRUGS (4)
  1. PULMICORT FLEXHALER [Suspect]
     Indication: ASTHMA
     Route: 055
     Dates: start: 20070901
  2. AVALIDE [Concomitant]
  3. PRILOSEC [Concomitant]
  4. RAQ [Concomitant]

REACTIONS (2)
  - BURNING SENSATION [None]
  - FATIGUE [None]
